FAERS Safety Report 6257741-3 (Version None)
Quarter: 2009Q3

REPORT INFORMATION
  Report Type: 
  Country: None (occurrence: None)
  Receive Date: 20090706
  Receipt Date: 20090622
  Transmission Date: 20100115
  Serious: Yes (Hospitalization)
  Sender: FDA-Public Use
  Company Number: GB-MYLANLABS-2009S1011068

PATIENT
  Age: 45 Year
  Sex: Female

DRUGS (3)
  1. TAMOXIFEN CITRATE [Suspect]
     Indication: BREAST CANCER
     Dates: start: 20081007
  2. EXEMESTANE [Suspect]
     Indication: HORMONE SUPPRESSION THERAPY
     Route: 048
     Dates: start: 20080716, end: 20081007
  3. TRIPTORELIN [Suspect]
     Indication: HORMONE SUPPRESSION THERAPY
     Route: 030
     Dates: start: 20080716, end: 20080909

REACTIONS (2)
  - ELECTROCARDIOGRAM QT PROLONGED [None]
  - SINUS BRADYCARDIA [None]
